FAERS Safety Report 21542425 (Version 2)
Quarter: 2023Q1

REPORT INFORMATION
  Report Type: Report from Study
  Country: KR (occurrence: KR)
  Receive Date: 20221102
  Receipt Date: 20230215
  Transmission Date: 20230418
  Serious: Yes (Hospitalization)
  Sender: FDA-Public Use
  Company Number: KR-GSK-KR2022156157

PATIENT

DRUGS (5)
  1. BELANTAMAB MAFODOTIN [Suspect]
     Active Substance: BELANTAMAB MAFODOTIN
     Indication: Plasma cell myeloma refractory
     Dosage: 60.80 MG, CYC (0.95 MG/KG)
     Route: 042
     Dates: start: 20220311, end: 20220623
  2. BELANTAMAB MAFODOTIN [Suspect]
     Active Substance: BELANTAMAB MAFODOTIN
     Dosage: 52.35 MG, CYC (0.95 MG/KG)
     Route: 042
     Dates: start: 20220714, end: 20220805
  3. BELANTAMAB MAFODOTIN [Suspect]
     Active Substance: BELANTAMAB MAFODOTIN
     Dosage: 58.24 MG, CYC  (0.95 MG/KG)
     Route: 042
     Dates: start: 20220826
  4. NIROGACESTAT [Suspect]
     Active Substance: NIROGACESTAT
     Indication: Plasma cell myeloma refractory
     Dosage: 2 DF (2 TABLETS), BID
     Route: 048
     Dates: start: 20220311, end: 20220428
  5. NIROGACESTAT [Suspect]
     Active Substance: NIROGACESTAT
     Dosage: 2 DF (2 TABLETS), QD
     Route: 048
     Dates: start: 20220623

REACTIONS (1)
  - Blood bilirubin increased [Not Recovered/Not Resolved]

NARRATIVE: CASE EVENT DATE: 20221020
